FAERS Safety Report 20028979 (Version 1)
Quarter: 2021Q4

REPORT INFORMATION
  Report Type: Spontaneous
  Country: US (occurrence: US)
  Receive Date: 20211103
  Receipt Date: 20211103
  Transmission Date: 20220303
  Serious: No
  Sender: FDA-Public Use
  Company Number: US-RVL_Pharmaceuticals-USA-POI0573202100352

PATIENT
  Age: 71 Year
  Sex: Male

DRUGS (3)
  1. UPNEEQ [Suspect]
     Active Substance: OXYMETAZOLINE HYDROCHLORIDE
     Indication: Eyelid ptosis
     Dosage: OD
     Route: 047
     Dates: start: 20210801, end: 20210801
  2. Unspecified Lubricant Eye drops [Concomitant]
     Indication: Dry eye
     Route: 047
     Dates: end: 202108
  3. ALLERGY EYE DROPS [Concomitant]
     Active Substance: NAPHAZOLINE HYDROCHLORIDE\PHENIRAMINE MALEATE
     Indication: Eye allergy
     Route: 047
     Dates: end: 202108

REACTIONS (3)
  - Swelling of eyelid [Recovered/Resolved]
  - Eye pruritus [Recovered/Resolved]
  - Ocular hyperaemia [Recovering/Resolving]

NARRATIVE: CASE EVENT DATE: 20210802
